FAERS Safety Report 7696672 (Version 3)
Quarter: 2012Q4

REPORT INFORMATION
  Report Type: Report from Study
  Country: US (occurrence: US)
  Receive Date: 20101207
  Receipt Date: 20120928
  Transmission Date: 20130627
  Serious: Yes (Hospitalization)
  Sender: FDA-Public Use
  Company Number: US-JNJFOC-20101200578

PATIENT
  Age: 15 Year
  Sex: Female
  Weight: 43 kg

DRUGS (4)
  1. INFLIXIMAB, RECOMBINANT [Suspect]
     Indication: CROHN^S DISEASE
     Route: 042
     Dates: start: 20091006, end: 20091006
  2. INFLIXIMAB, RECOMBINANT [Suspect]
     Indication: CROHN^S DISEASE
     Route: 042
     Dates: start: 20090401, end: 20090728
  3. HUMIRA [Concomitant]
     Indication: CROHN^S DISEASE
     Dates: end: 20091228
  4. ANTIBIOTICS [Concomitant]

REACTIONS (1)
  - Weight decreased [Recovered/Resolved]
